FAERS Safety Report 23137096 (Version 4)
Quarter: 2024Q1

REPORT INFORMATION
  Report Type: Report from Study
  Country: US (occurrence: US)
  Receive Date: 20231102
  Receipt Date: 20240123
  Transmission Date: 20240410
  Serious: Yes (Hospitalization)
  Sender: FDA-Public Use
  Company Number: US-ACADIA PHARMACEUTICALS INC.-ACA-2023-PIM-004452

PATIENT
  Sex: Male

DRUGS (1)
  1. NUPLAZID [Suspect]
     Active Substance: PIMAVANSERIN TARTRATE
     Indication: Parkinson^s disease psychosis
     Dosage: 34 MILLIGRAM, QD
     Route: 048

REACTIONS (10)
  - Urinary tract infection [Unknown]
  - Condition aggravated [Unknown]
  - Delirium [Unknown]
  - Blood pressure increased [Unknown]
  - Prostatic disorder [Unknown]
  - Urinary tract infection [Unknown]
  - Confusional state [Unknown]
  - Acupuncture [Unknown]
  - Parkinson^s disease [Unknown]
  - Drug ineffective [Unknown]
